FAERS Safety Report 6650127-9 (Version None)
Quarter: 2010Q1

REPORT INFORMATION
  Report Type: 
  Country: None (occurrence: None)
  Receive Date: 20100325
  Receipt Date: 20090330
  Transmission Date: 20100710
  Serious: No
  Sender: FDA-Public Use
  Company Number: US-KINGPHARMUSA00001-K200900370

PATIENT

DRUGS (1)
  1. ALTACE [Suspect]
     Dosage: 15 MG, UNK

REACTIONS (1)
  - LIP SWELLING [None]
